FAERS Safety Report 6256808-3 (Version None)
Quarter: 2009Q3

REPORT INFORMATION
  Report Type: 
  Country: None (occurrence: None)
  Receive Date: 20090706
  Receipt Date: 20090623
  Transmission Date: 20100115
  Serious: Yes (Hospitalization, Other)
  Sender: FDA-Public Use
  Company Number: PHHY2009IT25206

PATIENT
  Age: 74 Year
  Sex: Female

DRUGS (3)
  1. CYCLOSPORINE [Suspect]
     Indication: LIVER TRANSPLANT
     Dosage: UNK
     Dates: start: 19910501
  2. PREDNISOLONE [Suspect]
     Indication: LIVER TRANSPLANT
     Dosage: UNK
     Dates: start: 19910501
  3. PNEUMOVAX 23 [Concomitant]
     Route: 030

REACTIONS (6)
  - ARTERIAL ANEURYSM REPAIR [None]
  - ESCHERICHIA INFECTION [None]
  - PYREXIA [None]
  - SPLENECTOMY [None]
  - SPLENIC ARTERY ANEURYSM [None]
  - URINARY TRACT INFECTION [None]
